FAERS Safety Report 23904464 (Version 2)
Quarter: 2024Q2

REPORT INFORMATION
  Report Type: Spontaneous
  Country: DE (occurrence: DE)
  Receive Date: 20240527
  Receipt Date: 20240530
  Transmission Date: 20240716
  Serious: Yes (Other)
  Sender: FDA-Public Use
  Company Number: DE-PROCTER+GAMBLE-PH22013687

PATIENT
  Age: 71 Year
  Sex: Male
  Weight: 70 kg

DRUGS (22)
  1. TAMSULOSIN [Suspect]
     Active Substance: TAMSULOSIN
     Indication: Product used for unknown indication
     Dosage: 1 DF, ONCE DAILY (0-1-0 (MAINTENANCE MEDICATION), CERTAIN EXPOSURE, TAMSULOSIN 0.4)
     Route: 048
  2. PRAMIPEXOLE [Suspect]
     Active Substance: PRAMIPEXOLE\PRAMIPEXOLE DIHYDROCHLORIDE
     Indication: Product used for unknown indication
     Dosage: 3 DF, ONCE DAILY (1 TABLET, 3 /DAY, 1-1-1-0 TABLET(S) 0.35 MG (MAINTENANCE MEDICATION), CERTAIN EXPO
     Route: 048
  3. QUETIAPINE [Suspect]
     Active Substance: QUETIAPINE
     Indication: Product used for unknown indication
     Dosage: 1 DF, UNKNOWN FREQ.((MIX-UP) CERTAIN EXPOSURE, QUETIAPINE 100)
     Route: 048
  4. FERRO-SANOL DUODENAL [Suspect]
     Active Substance: FERROUS GLYCINE SULFATE
     Indication: Product used for unknown indication
     Dosage: 2 DF, ONCE DAILY (1 CAPSUL, 2 /DAY, 100 MG HARD CAPSULES, 1-0-1 (MAINTENANCE MEDICATION), CERTAIN EX
     Route: 048
  5. METOPROLOL [Suspect]
     Active Substance: METOPROLOL
     Indication: Product used for unknown indication
     Dosage: 1 DF, UNKNOWN FREQ. (1 TABLET, 47.5 MG, (MIX-UP) CERTAIN EXPOSURE)
     Route: 048
  6. FOLIC ACID [Suspect]
     Active Substance: FOLIC ACID
     Indication: Product used for unknown indication
     Dosage: 5 MG, UNKNOWN FREQ. (5 MILLIGRAM, (MIX-UP) CERTAIN EXPOSURE)
     Route: 048
  7. AKINETON [Suspect]
     Active Substance: BIPERIDEN HYDROCHLORIDE
     Indication: Product used for unknown indication
     Dosage: 1 DF, UNKNOWN FREQ. (1 TABLET (MIX-UP) CERTAIN EXPOSURE, AKINETON RETARD 4)
     Route: 048
  8. TORSEMIDE [Suspect]
     Active Substance: TORSEMIDE
     Indication: Product used for unknown indication
     Dosage: 1 DF, ONCE DAILY (1 TABLET, 1 /DAY, 10 TABLETS, 1-0-0 TABLET(S) (MAINTENANCE MEDICATION), CERTAIN)
     Route: 048
  9. CHOLECALCIFEROL [Suspect]
     Active Substance: CHOLECALCIFEROL
     Indication: Product used for unknown indication
     Dosage: 20000 IU, ONCE WEEKLY (WEDNESDAYS (1/W) (MAINTENANCE MEDICATION), CERTAIN EXPOSURE)
     Route: 048
  10. CALCIUM [Suspect]
     Active Substance: CALCIUM
     Indication: Product used for unknown indication
     Dosage: 1 DF, ONCE DAILY (1 TABLET, 1 /DAY, 1000 MG, 1-0-0 (MAINTENANCE MEDICATION), CERTAIN EXPOSURE)
     Route: 048
  11. POLYETHYLENE GLYCOLS [Suspect]
     Active Substance: POLYETHYLENE GLYCOLS
     Indication: Product used for unknown indication
     Dosage: UNK UNK, ONCE DAILY (2 /DAY, 1-1-0 (MAINTENANCE MEDICATION), CERTAIN EXPOSURE)
     Route: 048
  12. HALDOL [Suspect]
     Active Substance: HALOPERIDOL
     Indication: Product used for unknown indication
     Dosage: 1 DF, UNKNOWN FREQ. (1 TABLET (MIX-UP) CERTAIN EXPOSURE, HALDOL 2)
     Route: 048
  13. PANTOPRAZOLE [Suspect]
     Active Substance: PANTOPRAZOLE
     Indication: Product used for unknown indication
     Dosage: UNK UNK, ONCE DAILY (2 /DAY, 1-0-1 (MAINTENANCE MEDICATION), CERTAIN EXPOSURE, PANTOPRAZOLE 20)
     Route: 048
  14. CLOZAPINE [Suspect]
     Active Substance: CLOZAPINE
     Indication: Product used for unknown indication
     Dosage: 1 DF, UNKNOWN FREQ. (1 TABLET, 150 MG (MIX-UP) CERTAIN EXPOSURE)
     Route: 048
  15. FERROUS GLYCINE SULFATE [Suspect]
     Active Substance: FERROUS GLYCINE SULFATE
     Indication: Product used for unknown indication
     Dosage: 100 MG, UNKNOWN FREQ. (100 MILLIGRAM, (MIX-UP) CERTAIN EXPOSURE)
     Route: 048
  16. LEVETIRACETAM [Suspect]
     Active Substance: LEVETIRACETAM
     Indication: Product used for unknown indication
     Dosage: 1 DF, UNKNOWN FREQ. (1 TABLET (MIX-UP) CERTAIN EXPOSURE)
     Route: 048
  17. VITAMIN B12 [Suspect]
     Active Substance: CYANOCOBALAMIN
     Indication: Product used for unknown indication
     Dosage: UNK UNK, ONCE DAILY (2/DAY, 1-0-1 (MAINTENANCE MEDICATION), CERTAIN EXPOSURE)
     Route: 048
  18. XARELTO [Suspect]
     Active Substance: RIVAROXABAN
     Indication: Product used for unknown indication
     Dosage: 1 DF, ONCE DAILY (1 TABLET, 1 /DAY, 20 MG, 1-0-0 TABLET(S) (MAINTENANCE MEDICATION), CERTAIN EXPOSUR
     Route: 048
  19. CHOLECALCIFEROL [Suspect]
     Active Substance: CHOLECALCIFEROL
     Indication: Product used for unknown indication
     Dosage: 1 DF, UNKNOWN FREQ. (1 TABLET, (MIX-UP) CERTAIN EXPOSURE)
     Route: 048
  20. AKINETON [Suspect]
     Active Substance: BIPERIDEN HYDROCHLORIDE
     Indication: Product used for unknown indication
     Dosage: 1 DF, ONCE DAILY (1 TABLET, 1 /DAY, 1-0-0 TABLET(S) (MAINTENANCE MEDICATION), CERTAIN EXPOSURE)
     Route: 048
  21. LEVODOPA [Suspect]
     Active Substance: LEVODOPA
     Indication: Product used for unknown indication
     Dosage: 3 DF, ONCE DAILY (1 TABLET, 3 /DAY, 1-1-1-0 TABLET(S) 50/12.5 (MAINTENANCE MEDICATION), CERTAIN)
     Route: 048
  22. AMIODARONE [Suspect]
     Active Substance: AMIODARONE
     Indication: Product used for unknown indication
     Dosage: 1 DF, ONCE DAILY (1 TABLET, 1 /DAY, 1-0-0 TABLET(S) (MAINTENANCE MEDICATION), CERTAIN EXPOSURE)
     Route: 048

REACTIONS (9)
  - Renal failure [Recovering/Resolving]
  - Suicidal ideation [Recovering/Resolving]
  - Sopor [Recovering/Resolving]
  - Bradypnoea [Recovering/Resolving]
  - Bradycardia [Recovering/Resolving]
  - Diastolic hypotension [Recovering/Resolving]
  - Miosis [Recovering/Resolving]
  - Hypotension [Recovering/Resolving]
  - Polyuria [Recovering/Resolving]
